FAERS Safety Report 22312043 (Version 5)
Quarter: 2023Q4

REPORT INFORMATION
  Report Type: Report from Study
  Country: JP (occurrence: JP)
  Receive Date: 20230512
  Receipt Date: 20231107
  Transmission Date: 20240110
  Serious: Yes (Other)
  Sender: FDA-Public Use
  Company Number: JP-TAKEDA-2023TJP005500

PATIENT
  Age: 75 Year
  Sex: Male

DRUGS (6)
  1. LEUPROLIDE ACETATE [Suspect]
     Active Substance: LEUPROLIDE ACETATE
     Indication: Bulbospinal muscular atrophy congenital
     Dosage: 11.25 MILLIGRAM, Q3MONTHS
     Route: 058
     Dates: start: 20180205, end: 20230213
  2. SARPOGRELATE HYDROCHLORIDE F [Concomitant]
     Indication: Product used for unknown indication
     Dosage: 200 MILLIGRAM
     Route: 065
  3. ADRENALIN TARTRATE [Concomitant]
     Indication: Dizziness
     Dosage: 40 MILLIGRAM
     Route: 065
  4. CARBOCISTEINE CO [Concomitant]
     Indication: Sputum retention
     Dosage: 1500 MILLIGRAM
     Route: 065
  5. KETOPROFEN [Concomitant]
     Active Substance: KETOPROFEN
     Indication: Product used for unknown indication
     Dosage: 20 MILLIGRAM
     Route: 065
  6. FELBINAC P [Concomitant]
     Indication: Product used for unknown indication
     Dosage: 1.5 GRAM
     Route: 065

REACTIONS (3)
  - Seronegative arthritis [Recovering/Resolving]
  - Oedema peripheral [Recovering/Resolving]
  - Fibrin D dimer increased [Recovering/Resolving]

NARRATIVE: CASE EVENT DATE: 20230225
